FAERS Safety Report 25768738 (Version 1)
Quarter: 2025Q3

REPORT INFORMATION
  Report Type: Spontaneous
  Country: EU (occurrence: EU)
  Receive Date: 20250905
  Receipt Date: 20250905
  Transmission Date: 20251021
  Serious: Yes (Hospitalization, Other)
  Sender: Medicap Laboratories
  Company Number: EU-Medicap-000043

PATIENT
  Age: 86 Year
  Sex: Male

DRUGS (10)
  1. BISOPROLOL FUMARATE [Suspect]
     Active Substance: BISOPROLOL FUMARATE
     Indication: Product used for unknown indication
     Route: 065
  2. DIGOXIN [Concomitant]
     Active Substance: DIGOXIN
     Indication: Product used for unknown indication
     Dosage: 1-TIME DAILY HALF A TABLET OF DIGOXIN WAS ADMINISTERED
     Route: 065
  3. APIXABAN [Concomitant]
     Active Substance: APIXABAN
     Indication: Product used for unknown indication
     Route: 065
  4. ESOMEPRAZOLE [Concomitant]
     Active Substance: ESOMEPRAZOLE
     Indication: Product used for unknown indication
     Dosage: 40 MG ONCE DAILY HALF A TABLET OF ESOMEPRAZOLE WAS ADMINISTERED FROM 2 YEARS
     Route: 065
  5. OLANZAPINE [Suspect]
     Active Substance: OLANZAPINE
     Indication: Product used for unknown indication
     Dosage: 5 MG HALF A TABLET OF OLANZAPINE DAILY WAS ADMINISTERED FROM 6 YEARS
     Route: 065
  6. PREGABALIN [Concomitant]
     Active Substance: PREGABALIN
     Indication: Product used for unknown indication
     Dosage: 75 MG ONE TABLET OF PREGABALIN DAILY WERE ADMINISTERED FROM 6 YEARS
     Route: 065
  7. BROMAZEPAM [Concomitant]
     Active Substance: BROMAZEPAM
     Indication: Product used for unknown indication
     Dosage: 3 MG IN THE EVENING ONE OR HALF A TABLET OF BROMAZEPAM EVERY 2 DAYS WAS ADMINISTERED FROM 30 YEARS
     Route: 065
  8. ZOPICLONE [Concomitant]
     Active Substance: ZOPICLONE
     Indication: Product used for unknown indication
     Dosage: 7.5 MG ONE HALF TO ONE TABLET OF ZOPICLONE EVERY TWO DAYS WAS ADMINISTERED FROM 1 YEAR
     Route: 065
  9. QUETIAPINE [Concomitant]
     Active Substance: QUETIAPINE
     Indication: Product used for unknown indication
     Dosage: QUETIAPINE AT A DOSE OF 25 MG IN THE EVENING, ONE TO 2 TABLETS, EVERY 2 DAYS FROM 5-6 YEARS WERE AD
     Route: 065
  10. VENLAFAXINE [Suspect]
     Active Substance: VENLAFAXINE HYDROCHLORIDE
     Indication: Product used for unknown indication
     Dosage: 2 TIMES ONE TABLET OF VENLAFAXINE DAILY WERE ADMINISTERED FROM 6 YEARS
     Route: 065

REACTIONS (2)
  - Suspected product contamination [Recovered/Resolved]
  - Basal cell carcinoma [Recovered/Resolved]
